FAERS Safety Report 16816878 (Version 1)
Quarter: 2019Q3

REPORT INFORMATION
  Report Type: Spontaneous
  Country: US (occurrence: US)
  Receive Date: 20190917
  Receipt Date: 20190917
  Transmission Date: 20191005
  Serious: No
  Sender: FDA-Public Use
  Company Number: US-ALLERGAN-1858189US

PATIENT
  Sex: Female

DRUGS (1)
  1. LINZESS [Suspect]
     Active Substance: LINACLOTIDE
     Indication: CONSTIPATION
     Dosage: 72 ?G, QOD
     Route: 065

REACTIONS (5)
  - Contraindicated product administered [Unknown]
  - Nausea [Unknown]
  - Diarrhoea [Unknown]
  - Large intestinal obstruction [Unknown]
  - Inappropriate schedule of product administration [Unknown]
